FAERS Safety Report 10031213 (Version 1)
Quarter: 2014Q1

REPORT INFORMATION
  Report Type: Spontaneous
  Country: US (occurrence: US)
  Receive Date: 20140324
  Receipt Date: 20140324
  Transmission Date: 20141002
  Serious: Yes (Hospitalization)
  Sender: FDA-Public Use
  Company Number: US-BIOGENIDEC-2014BI025003

PATIENT
  Age: 38 Year
  Sex: Female

DRUGS (4)
  1. TECFIDERA [Suspect]
     Indication: MULTIPLE SCLEROSIS
     Route: 048
     Dates: start: 20140227
  2. TOPAMAX [Concomitant]
  3. CYMBALTA [Concomitant]
  4. CARBAMAZEPINE ER [Concomitant]

REACTIONS (2)
  - Road traffic accident [Recovered/Resolved]
  - Laceration [Not Recovered/Not Resolved]
